FAERS Safety Report 9135836 (Version 1)
Quarter: 2013Q1

REPORT INFORMATION
  Report Type: Spontaneous
  Country: US (occurrence: US)
  Receive Date: 20130219
  Receipt Date: 20130219
  Transmission Date: 20140127
  Serious: No
  Sender: FDA-Public Use
  Company Number: US-BRISTOL-MYERS SQUIBB COMPANY-17112863

PATIENT
  Age: 20 Year
  Sex: Female
  Weight: 58.05 kg

DRUGS (5)
  1. ORENCIA [Suspect]
     Indication: JUVENILE IDIOPATHIC ARTHRITIS
     Dosage: 2ND INF: 21NOV12
     Route: 042
     Dates: start: 20121106
  2. MOBIC [Concomitant]
  3. FOLIC ACID [Concomitant]
  4. TRAMADOL [Concomitant]
     Dosage: 1 DF= 50
  5. METHOTREXATE [Concomitant]
     Dosage: 1 DF= 5

REACTIONS (4)
  - Nausea [Recovering/Resolving]
  - Dizziness [Recovering/Resolving]
  - Chills [Not Recovered/Not Resolved]
  - Myalgia [Not Recovered/Not Resolved]
